FAERS Safety Report 12790172 (Version 1)
Quarter: 2016Q3

REPORT INFORMATION
  Report Type: Spontaneous
  Country: GB (occurrence: GB)
  Receive Date: 20160928
  Receipt Date: 20160928
  Transmission Date: 20161109
  Serious: Yes (Hospitalization)
  Sender: FDA-Public Use
  Company Number: GB-ABBVIE-16P-167-1738252-00

PATIENT
  Age: 38 Year
  Sex: Male

DRUGS (1)
  1. DEPAKOTE [Suspect]
     Active Substance: DIVALPROEX SODIUM
     Indication: PRODUCT USED FOR UNKNOWN INDICATION
     Route: 048

REACTIONS (6)
  - Tremor [Unknown]
  - Restlessness [Unknown]
  - Hypersomnia [Unknown]
  - Sedation [Unknown]
  - Poor quality sleep [Unknown]
  - Medication monitoring error [Unknown]
